FAERS Safety Report 6930690-0 (Version None)
Quarter: 2010Q3

REPORT INFORMATION
  Report Type: 
  Country: None (occurrence: None)
  Receive Date: 20100809
  Receipt Date: 20091022
  Transmission Date: 20110219
  Serious: No
  Sender: FDA-Public Use
  Company Number: US-000599

PATIENT
  Sex: Male

DRUGS (5)
  1. DEGARELIX 120 MG [Suspect]
     Indication: PROSTATE CANCER
     Dosage: (240 MG SUBCUTANEOUS)
     Route: 058
     Dates: start: 20090707, end: 20090707
  2. PRINIVIL [Concomitant]
  3. SIMVASTATIN [Concomitant]
  4. DAILY MULTIVITAMIN [Concomitant]
  5. ACETYLSALICYLIC ACID [Concomitant]

REACTIONS (3)
  - INJECTION SITE ERYTHEMA [None]
  - INJECTION SITE INDURATION [None]
  - INJECTION SITE WARMTH [None]
